FAERS Safety Report 23076709 (Version 1)
Quarter: 2023Q4

REPORT INFORMATION
  Report Type: Report from Study
  Country: EG (occurrence: EG)
  Receive Date: 20231017
  Receipt Date: 20231017
  Transmission Date: 20240109
  Serious: Yes (Hospitalization, Other)
  Sender: FDA-Public Use
  Company Number: EG-SANDOZ-SDZ2023EG041937

PATIENT
  Age: 10 Year
  Sex: Male
  Weight: 34.5 kg

DRUGS (5)
  1. NORDITROPIN [Suspect]
     Active Substance: SOMATROPIN
     Indication: Growth hormone deficiency
     Dosage: UNK
     Route: 058
  2. OMNITROPE [Suspect]
     Active Substance: SOMATROPIN
     Indication: Growth hormone deficiency
     Dosage: 0.9 MG/DAY THEN INCREASED TO 1 MG/DAY
     Route: 058
     Dates: start: 20211217
  3. OMNITROPE [Suspect]
     Active Substance: SOMATROPIN
     Dosage: 0.9 MG/DAY THEN INCREASED TO 1 MG/DAY
     Route: 058
     Dates: start: 20211217
  4. OCTOZINC [Concomitant]
     Indication: Malnutrition
     Dosage: 1 CAP, QD
     Route: 048
     Dates: start: 20211217
  5. OMEGA 3 [Concomitant]
     Active Substance: CAPSAICIN
     Indication: Malnutrition
     Dosage: 1 CAP, QD
     Route: 048
     Dates: start: 20211217

REACTIONS (6)
  - Anaphylactic shock [Recovered/Resolved]
  - Abdominal rigidity [Recovered/Resolved]
  - Abdominal pain upper [Recovered/Resolved]
  - Attention deficit hyperactivity disorder [Not Recovered/Not Resolved]
  - Product availability issue [Not Recovered/Not Resolved]
  - Product dose omission issue [Recovered/Resolved]

NARRATIVE: CASE EVENT DATE: 20211217
